FAERS Safety Report 6442427-2 (Version None)
Quarter: 2009Q4

REPORT INFORMATION
  Report Type: 
  Country: None (occurrence: None)
  Receive Date: 20091112
  Receipt Date: 20091102
  Transmission Date: 20100525
  Serious: Yes (Other)
  Sender: FDA-Public Use
  Company Number: ADR46722009

PATIENT
  Age: 84 Year
  Sex: Male

DRUGS (12)
  1. SIMVASTATIN [Suspect]
     Indication: BLOOD CHOLESTEROL INCREASED
     Dosage: 1 DF ORAL
     Route: 048
     Dates: start: 20040104, end: 20060111
  2. AMOXICILLIN [Concomitant]
  3. DIGOXIN [Concomitant]
  4. ENZIRA [Concomitant]
  5. FUROSEMIDE [Concomitant]
  6. LANSOPRAZOLE [Concomitant]
  7. LATANOPROST [Concomitant]
  8. MESALAZINE [Concomitant]
  9. PREDNISOLONE [Concomitant]
  10. RAMIPRIL [Concomitant]
  11. TIMOPTOL-LA [Concomitant]
  12. WARFARIN SODIUM [Concomitant]

REACTIONS (1)
  - EXTERNAL EAR DISORDER [None]
